FAERS Safety Report 5105905-4 (Version None)
Quarter: 2006Q3

REPORT INFORMATION
  Report Type: 
  Country: None (occurrence: None)
  Receive Date: 20060912
  Receipt Date: 20060825
  Transmission Date: 20061208
  Serious: Yes (Other)
  Sender: FDA-Public Use
  Company Number: US200608006037

PATIENT
  Age: 51 Year
  Sex: Female

DRUGS (3)
  1. HUMALOG MIX 75/25 [Suspect]
     Indication: DIABETES MELLITUS
     Dosage: 64 U, DAILY (1/D)
     Dates: start: 19960101
  2. AMARYLLE (GLIMEPIRIDE) [Concomitant]
  3. HORMONES AND RELATED AGENTS [Concomitant]

REACTIONS (2)
  - HIP ARTHROPLASTY [None]
  - INJECTION SITE IRRITATION [None]
